FAERS Safety Report 4482031-9 (Version None)
Quarter: 2004Q4

REPORT INFORMATION
  Report Type: 
  Country: None (occurrence: None)
  Receive Date: 20041022
  Receipt Date: 20040908
  Transmission Date: 20050328
  Serious: Yes (Death, Life-Threatening)
  Sender: FDA-Public Use
  Company Number: JP-BRISTOL-MYERS SQUIBB COMPANY-12698882

PATIENT
  Age: 54 Year
  Sex: Female

DRUGS (3)
  1. IFOMIDE [Suspect]
     Indication: CERVIX CARCINOMA
     Route: 041
     Dates: start: 20040812, end: 20040814
  2. AQUPLA [Suspect]
     Indication: CERVIX CARCINOMA
     Route: 041
     Dates: start: 20040812, end: 20040812
  3. PREDONINE [Concomitant]
     Indication: INTERSTITIAL LUNG DISEASE
     Dates: start: 20040622

REACTIONS (6)
  - CLOSTRIDIUM COLITIS [None]
  - ENDOTOXIC SHOCK [None]
  - MESENTERIC OCCLUSION [None]
  - MULTI-ORGAN FAILURE [None]
  - PLATELET COUNT DECREASED [None]
  - WHITE BLOOD CELL COUNT DECREASED [None]
